FAERS Safety Report 10230030 (Version 1)
Quarter: 2014Q2

REPORT INFORMATION
  Report Type: Spontaneous
  Country: US (occurrence: US)
  Receive Date: 20140611
  Receipt Date: 20140611
  Transmission Date: 20141212
  Serious: No
  Sender: FDA-Public Use
  Company Number: US-ABBVIE-14P-163-1213602-00

PATIENT
  Sex: Male
  Weight: 70.37 kg

DRUGS (24)
  1. K-TAB [Suspect]
     Indication: NEPHROTIC SYNDROME
     Dates: start: 201401
  2. LASIX [Concomitant]
     Indication: NEPHROTIC SYNDROME
  3. LASIX [Concomitant]
     Indication: HYPERTENSION
  4. COZAAR [Concomitant]
     Indication: PROPHYLAXIS
  5. COZAAR [Concomitant]
     Indication: PROTEINURIA
  6. METOPROLOL TARTRATE [Concomitant]
     Indication: HYPERTENSION
  7. LISINOPRIL [Concomitant]
     Indication: PROPHYLAXIS
  8. LISINOPRIL [Concomitant]
     Indication: PROTEINURIA
  9. PROCARDIA [Concomitant]
     Indication: HYPERTENSION
  10. ELIQUIS [Concomitant]
     Indication: ATRIAL FIBRILLATION
  11. MAGNESIUM [Concomitant]
     Indication: NEPHROTIC SYNDROME
  12. PREDNISONE [Concomitant]
     Indication: NEPHROTIC SYNDROME
  13. FERROUS SULFATE [Concomitant]
     Indication: ANAEMIA
  14. ALLOPURINOL [Concomitant]
     Indication: PROPHYLAXIS
  15. ALLOPURINOL [Concomitant]
     Indication: GOUT
  16. PRAVACHOL [Concomitant]
     Indication: BLOOD CHOLESTEROL INCREASED
  17. NIASPAN [Concomitant]
     Indication: BLOOD CHOLESTEROL INCREASED
  18. TRAVATAN [Concomitant]
     Indication: GLAUCOMA
  19. ASPIRIN [Concomitant]
     Indication: PRODUCT USED FOR UNKNOWN INDICATION
  20. PROSCAR [Concomitant]
     Indication: PROSTATOMEGALY
  21. CENTRUM SILVER [Concomitant]
     Indication: SUPPLEMENTATION THERAPY
  22. CALCIUM CITRATE WITH VITAMIN D3 [Concomitant]
     Indication: SUPPLEMENTATION THERAPY
  23. VITAMIN D [Concomitant]
     Indication: SUPPLEMENTATION THERAPY
  24. VITAMIN B 12 [Concomitant]
     Indication: SUPPLEMENTATION THERAPY

REACTIONS (2)
  - Medication residue present [Not Recovered/Not Resolved]
  - Diarrhoea [Recovered/Resolved]
